FAERS Safety Report 12181757 (Version 5)
Quarter: 2016Q2

REPORT INFORMATION
  Report Type: Spontaneous
  Country: JP (occurrence: JP)
  Receive Date: 20160315
  Receipt Date: 20160524
  Transmission Date: 20160815
  Serious: Yes (Hospitalization, Other)
  Sender: FDA-Public Use
  Company Number: JP-TAKEDA-2016MPI001775

PATIENT
  Age: 76 Year
  Sex: Male
  Weight: 53.6 kg

DRUGS (126)
  1. TIZANIDINE. [Concomitant]
     Active Substance: TIZANIDINE
     Indication: SPINAL COMPRESSION FRACTURE
     Dosage: 1 MG, TID
     Route: 048
     Dates: start: 20151028
  2. PRIMPERAN [Concomitant]
     Active Substance: METOCLOPRAMIDE HYDROCHLORIDE
     Indication: PROPHYLAXIS
     Dosage: UNK
     Route: 065
  3. SOLDEM 1 [Concomitant]
     Active Substance: DEXTROSE\SODIUM CHLORIDE\SODIUM LACTATE
     Dosage: 500 ML, UNK
     Route: 042
     Dates: start: 20151208, end: 20151208
  4. SOLULACT [Concomitant]
     Dosage: 500 ML, UNK
     Route: 042
     Dates: start: 20151111, end: 20151111
  5. PITAVASTATIN [Concomitant]
     Active Substance: PITAVASTATIN
     Indication: HYPERLIPIDAEMIA
     Dosage: 1 MG, UNK
     Route: 048
     Dates: start: 20151027
  6. VALACICLOVIR [Concomitant]
     Active Substance: VALACYCLOVIR HYDROCHLORIDE
     Indication: ANTIVIRAL PROPHYLAXIS
     Dosage: 500 MG, 3/WEEK
     Route: 048
     Dates: start: 20151216
  7. GOODMIN [Concomitant]
     Active Substance: BROTIZOLAM
     Dosage: 0.25 MG, UNK
     Route: 048
     Dates: start: 20151101, end: 20151216
  8. NOVAMINE [Concomitant]
     Active Substance: ALANINE\ARGININE\ASPARTIC ACID\GLUTAMIC ACID\GLYCINE\HISTIDINE\ISOLEUCINE\LEUCINE\LYSINE ACETATE\METHIONINE\PHENYLALANINE\PROLINE\SERINE\THREONINE\TRYPTOPHAN\TYROSINE\VALINE
     Indication: PROPHYLAXIS OF NAUSEA AND VOMITING
     Dosage: 5 MG, TID
     Route: 048
     Dates: start: 20151030
  9. HEPAFLUSH [Concomitant]
     Active Substance: HEPARIN SODIUM
     Dosage: 10 ML, BID
     Route: 042
     Dates: start: 20151109, end: 20151109
  10. HEPAFLUSH [Concomitant]
     Active Substance: HEPARIN SODIUM
     Dosage: 10 ML, UNK
     Route: 042
     Dates: start: 20160103, end: 20160104
  11. BESOFTEN [Concomitant]
     Active Substance: SODIUM ALGINATE
     Indication: INSOMNIA
  12. MEROPENEM. [Concomitant]
     Active Substance: MEROPENEM
     Dosage: 500 MG, BID
     Route: 042
     Dates: start: 20151214, end: 20151220
  13. FINIBAX [Concomitant]
     Active Substance: DORIPENEM MONOHYDRATE
     Indication: SEPSIS
     Dosage: 0.5 G, BID
     Route: 042
     Dates: start: 20151124, end: 20151207
  14. VELCADE [Suspect]
     Active Substance: BORTEZOMIB
     Indication: PLASMA CELL MYELOMA
     Dosage: 1.5 MG, 2/WEEK
     Route: 058
     Dates: start: 20151030, end: 20151102
  15. DEXAMETHASONE. [Suspect]
     Active Substance: DEXAMETHASONE
     Indication: PLASMA CELL MYELOMA
     Dosage: 19.8 MG, UNK
     Route: 042
     Dates: start: 20151030, end: 20151106
  16. ACETAMINOPHEN. [Concomitant]
     Active Substance: ACETAMINOPHEN
     Indication: BACK PAIN
     Dosage: 400 MG, UNK
     Route: 048
     Dates: start: 20151118, end: 20151118
  17. ACETAMINOPHEN. [Concomitant]
     Active Substance: ACETAMINOPHEN
     Indication: PYREXIA
     Dosage: 400 MG, UNK
     Route: 048
     Dates: start: 20151204, end: 20151204
  18. SOLU-CORTEF [Concomitant]
     Active Substance: HYDROCORTISONE SODIUM SUCCINATE
     Indication: CHILLS
     Dosage: UNK
     Route: 065
     Dates: start: 20151030, end: 20151030
  19. SOLULACT [Concomitant]
     Dosage: 500 ML, BID
     Route: 042
     Dates: start: 20151112, end: 20151115
  20. ZOLEDRONIC ACID [Concomitant]
     Active Substance: ZOLEDRONIC ACID
     Dosage: 4 MG, UNK
     Route: 042
     Dates: start: 20151027, end: 20151027
  21. ZOLEDRONIC ACID [Concomitant]
     Active Substance: ZOLEDRONIC ACID
     Dosage: 4 MG, UNK
     Route: 042
     Dates: start: 20151016
  22. AMLODIPINE [Concomitant]
     Active Substance: AMLODIPINE BESYLATE
     Indication: HYPERTENSION
     Dosage: 5 MG, UNK
     Route: 048
     Dates: start: 20151111
  23. TEARBALANCE [Concomitant]
     Active Substance: HYALURONATE SODIUM
     Indication: PROPHYLAXIS
     Dosage: UNK, QID
     Route: 047
  24. METOCLOPRAMIDE. [Concomitant]
     Active Substance: METOCLOPRAMIDE
     Dosage: 10 MG, UNK
     Route: 048
     Dates: start: 20160102, end: 20160102
  25. METOCLOPRAMIDE. [Concomitant]
     Active Substance: METOCLOPRAMIDE
     Dosage: UNK
     Route: 065
     Dates: start: 20151103, end: 20151103
  26. VALIXA [Concomitant]
     Active Substance: VALGANCICLOVIR
     Indication: CYTOMEGALOVIRUS INFECTION
     Dosage: 450 MG, BID
     Route: 048
     Dates: start: 20151129, end: 20151208
  27. MEROPENEM. [Concomitant]
     Active Substance: MEROPENEM
     Indication: LUNG INFECTION
     Dosage: 500 MG, UNK
     Route: 042
     Dates: start: 20151221, end: 20151221
  28. IMMUNOGLOBULIN HUMAN NORMAL [Concomitant]
     Active Substance: HUMAN IMMUNOGLOBULIN G
     Dosage: 5000 MG, UNK
     Dates: start: 20151111, end: 20151112
  29. BFLUID [Concomitant]
     Active Substance: AMINO ACIDS\DEXTROSE\ELECTROLYTES NOS\VITAMINS
     Indication: SEPSIS
     Dosage: 500 ML, BID
     Route: 042
     Dates: start: 20151112, end: 20151115
  30. OXYCODONE [Concomitant]
     Active Substance: OXYCODONE
     Indication: CONSTIPATION
     Dosage: 5 MG, UNK
     Route: 048
     Dates: start: 20151218, end: 20151218
  31. FILGRASTIM [Concomitant]
     Active Substance: FILGRASTIM
     Indication: NEUTROPHIL COUNT DECREASED
     Dosage: UNK
     Route: 058
     Dates: start: 20151203, end: 20151204
  32. FEXOFENADINE [Concomitant]
     Active Substance: FEXOFENADINE\FEXOFENADINE HYDROCHLORIDE
     Indication: DRUG ERUPTION
     Dosage: 60 MG, BID
     Route: 048
     Dates: start: 20151113, end: 20151119
  33. ACETAMINOPHEN. [Concomitant]
     Active Substance: ACETAMINOPHEN
     Dosage: 400 MG, UNK
     Route: 048
     Dates: start: 20151206, end: 20151206
  34. MAGLAX [Concomitant]
     Active Substance: MAGNESIUM OXIDE
     Indication: CONSTIPATION
     Dosage: 500 MG, TID
     Route: 048
  35. SOLDEM 1 [Concomitant]
     Active Substance: DEXTROSE\SODIUM CHLORIDE\SODIUM LACTATE
     Indication: DECREASED APPETITE
     Dosage: 500 ML, BID
     Route: 042
     Dates: start: 20151110, end: 20151110
  36. SOLDEM 1 [Concomitant]
     Active Substance: DEXTROSE\SODIUM CHLORIDE\SODIUM LACTATE
     Dosage: 500 ML, BID
     Route: 042
     Dates: start: 20151211, end: 20151212
  37. REBAMIPIDE [Concomitant]
     Active Substance: REBAMIPIDE
     Indication: PROPHYLAXIS
     Dosage: 100 MG, TID
     Route: 065
  38. OXYNORM [Concomitant]
     Active Substance: OXYCODONE HYDROCHLORIDE
     Indication: CANCER PAIN
     Dosage: 2.5 MG, UNK
     Route: 048
  39. ATARAX [Concomitant]
     Active Substance: HYDROXYZINE\HYDROXYZINE HYDROCHLORIDE
     Indication: VOMITING
     Dosage: 25 MG, UNK
     Route: 048
     Dates: start: 20151015, end: 20151015
  40. ATARAX [Concomitant]
     Active Substance: HYDROXYZINE\HYDROXYZINE HYDROCHLORIDE
     Indication: PROPHYLAXIS OF NAUSEA AND VOMITING
     Dosage: 25 MG, UNK
     Route: 042
     Dates: start: 20151103, end: 20151103
  41. TEARBALANCE [Concomitant]
     Active Substance: HYALURONATE SODIUM
     Dosage: UNK
     Route: 065
  42. HEPAFLUSH [Concomitant]
     Active Substance: HEPARIN SODIUM
     Dosage: 10 ML, UNK
     Route: 042
     Dates: start: 20151110, end: 20151110
  43. HEPAFLUSH [Concomitant]
     Active Substance: HEPARIN SODIUM
     Dosage: 10 ML, UNK
     Route: 042
     Dates: start: 20151215, end: 20151216
  44. HEPAFLUSH [Concomitant]
     Active Substance: HEPARIN SODIUM
     Dosage: 10 ML, UNK
     Route: 042
     Dates: start: 20151217, end: 20151220
  45. KARY UNI                           /00528801/ [Concomitant]
     Active Substance: PIRENOXINE
     Indication: CATARACT
  46. VFEND [Concomitant]
     Active Substance: VORICONAZOLE
     Indication: LUNG INFECTION
     Dosage: 200 MG, BID
     Route: 048
     Dates: start: 20151208, end: 20151211
  47. VANCOMYCIN [Concomitant]
     Active Substance: VANCOMYCIN
     Dosage: 0.5 G, BID
     Route: 042
     Dates: start: 20151112, end: 20151112
  48. FIRSTCIN [Concomitant]
     Active Substance: CEFOZOPRAN HYDROCHLORIDE
     Indication: SEPSIS
     Dosage: UNK, QOD
     Route: 042
     Dates: start: 20151109, end: 20151109
  49. OXYCODONE [Concomitant]
     Active Substance: OXYCODONE
     Dosage: 15 MG, BID
     Route: 048
     Dates: start: 20151202, end: 20151205
  50. OXYCODONE [Concomitant]
     Active Substance: OXYCODONE
     Dosage: 5 MG, BID
     Route: 048
     Dates: start: 20160205
  51. SOLULACT [Concomitant]
     Dosage: UNK
     Route: 065
  52. LACRIMIN [Concomitant]
     Active Substance: BENOXINATE HYDROCHLORIDE
     Indication: PROPHYLAXIS
     Dosage: UNK
     Route: 065
  53. HEPAFLUSH [Concomitant]
     Active Substance: HEPARIN SODIUM
     Dosage: 10 ML, UNK
     Route: 042
     Dates: start: 20151127, end: 20151207
  54. METOCLOPRAMIDE. [Concomitant]
     Active Substance: METOCLOPRAMIDE
     Dosage: 5 MG, TID
     Route: 048
     Dates: start: 20151030, end: 20151102
  55. METOCLOPRAMIDE. [Concomitant]
     Active Substance: METOCLOPRAMIDE
     Dosage: 10 MG, UNK
     Route: 048
     Dates: start: 20151230, end: 20151230
  56. BFLUID [Concomitant]
     Active Substance: AMINO ACIDS\DEXTROSE\ELECTROLYTES NOS\VITAMINS
     Dosage: 500 ML, UNK
     Route: 042
     Dates: start: 20151111, end: 20151111
  57. OXYCODONE [Concomitant]
     Active Substance: OXYCODONE
     Dosage: 10 MG, BID
     Route: 048
     Dates: start: 20151118, end: 20151211
  58. VITAMEDIN INTRAVENOUS [Concomitant]
     Active Substance: CYANOCOBALAMIN\PYRIDOXINE HYDROCHLORIDE\THIAMINE
     Indication: SEPSIS
     Dosage: UNK
     Route: 042
     Dates: start: 20151111, end: 20151115
  59. VITAMEDIN INTRAVENOUS [Concomitant]
     Active Substance: CYANOCOBALAMIN\PYRIDOXINE HYDROCHLORIDE\THIAMINE
     Dosage: UNK
     Route: 042
     Dates: start: 20160222, end: 20160225
  60. VELCADE [Suspect]
     Active Substance: BORTEZOMIB
     Dosage: 1.5 MG, 2/WEEK
     Route: 058
     Dates: end: 20151127
  61. GENINAX [Concomitant]
     Active Substance: GARENOXACIN MESYLATE
     Indication: LUNG INFECTION
     Dosage: 400 MG, UNK
     Route: 048
     Dates: start: 20151211, end: 20151211
  62. GENINAX [Concomitant]
     Active Substance: GARENOXACIN MESYLATE
     Dosage: 400 MG, UNK
     Route: 048
     Dates: start: 20151208, end: 20151209
  63. SOLDEM 1 [Concomitant]
     Active Substance: DEXTROSE\SODIUM CHLORIDE\SODIUM LACTATE
     Dosage: 500 ML, UNK
     Route: 042
     Dates: start: 20151118, end: 20151118
  64. SOLDEM 1 [Concomitant]
     Active Substance: DEXTROSE\SODIUM CHLORIDE\SODIUM LACTATE
     Dosage: 500 ML, BID
     Route: 048
     Dates: start: 20151117, end: 20151117
  65. EQUA [Concomitant]
     Active Substance: VILDAGLIPTIN
     Indication: DIABETES MELLITUS
     Dosage: 50 MG, UNK
     Route: 048
  66. AZULENE [Concomitant]
     Active Substance: AZULENE
     Indication: INFECTION PROPHYLAXIS
     Dosage: UNK
     Route: 061
     Dates: start: 20151023
  67. LANSOPRAZOLE. [Concomitant]
     Active Substance: LANSOPRAZOLE
     Indication: CHRONIC GASTRITIS
     Dosage: 15 MG, UNK
     Route: 048
  68. PROPETO [Concomitant]
     Indication: PROPHYLAXIS
     Dosage: UNK
     Route: 061
  69. ZOLEDRONIC ACID [Concomitant]
     Active Substance: ZOLEDRONIC ACID
     Dosage: 4 MG, UNK
     Route: 042
     Dates: start: 20160122, end: 20160122
  70. ZOLEDRONIC ACID [Concomitant]
     Active Substance: ZOLEDRONIC ACID
     Dosage: 4 MG, UNK
     Route: 042
     Dates: start: 20151229, end: 20151229
  71. MEROPENEM. [Concomitant]
     Active Substance: MEROPENEM
     Indication: SEPSIS
     Dosage: 0.5 G, BID
     Route: 065
     Dates: start: 20151111, end: 20151123
  72. MEROPENEM. [Concomitant]
     Active Substance: MEROPENEM
     Dosage: 500 MG, UNK
     Route: 042
     Dates: start: 20151212, end: 20151213
  73. MEROPENEM. [Concomitant]
     Active Substance: MEROPENEM
     Dosage: 0.5 G, UNK
     Route: 042
     Dates: start: 20151110, end: 20151110
  74. BFLUID [Concomitant]
     Active Substance: AMINO ACIDS\DEXTROSE\ELECTROLYTES NOS\VITAMINS
     Indication: DEHYDRATION
     Dosage: 500 ML, UNK
     Route: 042
     Dates: start: 20151116, end: 20151116
  75. OXYCODONE [Concomitant]
     Active Substance: OXYCODONE
     Dosage: 5 MG, BID
     Route: 048
     Dates: end: 20151112
  76. ACETAMINOPHEN. [Concomitant]
     Active Substance: ACETAMINOPHEN
     Dosage: 400 MG, UNK
     Route: 048
     Dates: start: 20151212, end: 20151212
  77. PRIMPERAN [Concomitant]
     Active Substance: METOCLOPRAMIDE HYDROCHLORIDE
     Indication: VOMITING
     Dosage: UNK
     Route: 065
  78. SOLDEM 1 [Concomitant]
     Active Substance: DEXTROSE\SODIUM CHLORIDE\SODIUM LACTATE
     Dosage: 1000 ML, QID
     Route: 042
     Dates: start: 20151210
  79. SOLDEM 1 [Concomitant]
     Active Substance: DEXTROSE\SODIUM CHLORIDE\SODIUM LACTATE
     Dosage: 500 ML, UNK
     Route: 048
     Dates: start: 20151111, end: 20151111
  80. SOLULACT [Concomitant]
     Indication: UPPER RESPIRATORY TRACT INFECTION
     Dosage: 500 ML, BID
     Route: 042
     Dates: start: 20151018, end: 20151018
  81. SOLULACT [Concomitant]
     Indication: SEPSIS
     Dosage: 500 ML, UNK
     Route: 042
     Dates: start: 20151116, end: 20151116
  82. SULFAMETHOXAZOLE AND TRIMETHOPRIM [Concomitant]
     Active Substance: SULFAMETHOXAZOLE\TRIMETHOPRIM
     Indication: ANTIFUNGAL PROPHYLAXIS
     Dosage: UNK, 3/WEEK
     Route: 048
     Dates: start: 20151130
  83. LOSARTAN POTASSIUM. [Concomitant]
     Active Substance: LOSARTAN POTASSIUM
     Indication: HYPERTENSION
     Dosage: 50 MG, UNK
     Route: 048
  84. FEBURIC [Concomitant]
     Active Substance: FEBUXOSTAT
     Indication: HYPERURICAEMIA
     Dosage: 20 MG, UNK
     Route: 048
     Dates: start: 20151103
  85. HEPAFLUSH [Concomitant]
     Active Substance: HEPARIN SODIUM
     Dosage: 10 ML, UNK
     Route: 042
     Dates: start: 20151103, end: 20151108
  86. KARY UNI                           /00528801/ [Concomitant]
     Active Substance: PIRENOXINE
     Indication: PROPHYLAXIS
     Dosage: UNK, QID
     Route: 047
  87. FUNGUARD [Concomitant]
     Active Substance: MICAFUNGIN SODIUM
     Indication: SEPSIS
     Dosage: 50 MG, TID
     Route: 042
     Dates: start: 20151110, end: 20151208
  88. OXYCODONE [Concomitant]
     Active Substance: OXYCODONE
     Indication: BACK PAIN
     Dosage: 5 MG, BID
     Route: 048
     Dates: start: 20151219, end: 20151229
  89. VITAMEDIN INTRAVENOUS [Concomitant]
     Active Substance: CYANOCOBALAMIN\PYRIDOXINE HYDROCHLORIDE\THIAMINE
     Dosage: UNK
     Route: 042
     Dates: start: 20151212, end: 20151214
  90. HYALURONATE NA [Concomitant]
     Indication: PROPHYLAXIS
     Dosage: UNK, QID
     Route: 047
     Dates: start: 20151218
  91. BENOXIL [Concomitant]
     Active Substance: BENOXINATE HYDROCHLORIDE
     Indication: PROPHYLAXIS
  92. DARATUMUMAB [Suspect]
     Active Substance: DARATUMUMAB
     Indication: PLASMA CELL MYELOMA
     Dosage: 864 MG, 1/WEEK
     Route: 042
     Dates: start: 20151030, end: 20151106
  93. MELPHALAN [Suspect]
     Active Substance: MELPHALAN
     Indication: PLASMA CELL MYELOMA
     Dosage: 12 MG, UNK
     Route: 048
     Dates: start: 20151030, end: 20151102
  94. SOLDEM 1 [Concomitant]
     Active Substance: DEXTROSE\SODIUM CHLORIDE\SODIUM LACTATE
     Dosage: 500 ML, UNK
     Route: 042
     Dates: start: 20151104, end: 20151104
  95. SOLULACT [Concomitant]
     Dosage: 500 ML, BID
     Route: 042
     Dates: start: 20151018, end: 20151018
  96. SULFAMETHOXAZOLE AND TRIMETHOPRIM [Concomitant]
     Active Substance: SULFAMETHOXAZOLE\TRIMETHOPRIM
     Dosage: UNK
     Route: 048
     Dates: start: 20151029, end: 20151126
  97. VALACICLOVIR [Concomitant]
     Active Substance: VALACYCLOVIR HYDROCHLORIDE
     Dosage: 500 MG, UNK
     Route: 048
     Dates: start: 20151029, end: 20151126
  98. GOODMIN [Concomitant]
     Active Substance: BROTIZOLAM
     Indication: INSOMNIA
     Dosage: 0.125 MG, UNK
     Route: 048
     Dates: start: 20151217
  99. HEPAFLUSH [Concomitant]
     Active Substance: HEPARIN SODIUM
     Dosage: 10 ML, UNK
     Route: 042
     Dates: start: 20151116, end: 20151117
  100. BESOFTEN [Concomitant]
     Active Substance: SODIUM ALGINATE
     Indication: PROPHYLAXIS
  101. VALIXA [Concomitant]
     Active Substance: VALGANCICLOVIR
     Dosage: 450 MG, UNK
     Route: 048
     Dates: start: 20151211, end: 20151211
  102. VFEND [Concomitant]
     Active Substance: VORICONAZOLE
     Dosage: 200 MG, UNK
     Route: 048
     Dates: start: 20151212
  103. IMMUNOGLOBULIN HUMAN NORMAL [Concomitant]
     Active Substance: HUMAN IMMUNOGLOBULIN G
     Dosage: 5000 MG, UNK
     Route: 042
     Dates: start: 20151201, end: 20151202
  104. VANCOMYCIN [Concomitant]
     Active Substance: VANCOMYCIN
     Indication: SEPSIS
     Dosage: 0.5 G, UNK
     Dates: start: 20151111, end: 20151111
  105. BFLUID [Concomitant]
     Active Substance: AMINO ACIDS\DEXTROSE\ELECTROLYTES NOS\VITAMINS
     Indication: DECREASED APPETITE
     Dosage: 500 ML, UNK
     Route: 042
     Dates: start: 20151212, end: 20151212
  106. FIRSTCIN [Concomitant]
     Active Substance: CEFOZOPRAN HYDROCHLORIDE
     Dosage: 1 G, UNK
     Route: 042
     Dates: start: 20151110, end: 20151110
  107. BENOXIL [Concomitant]
     Active Substance: BENOXINATE HYDROCHLORIDE
     Indication: LACRIMATION DISORDER
     Dosage: UNK
     Route: 047
     Dates: start: 20151218
  108. SENNOSIDE                          /00571901/ [Concomitant]
     Active Substance: SENNOSIDES A AND B
     Indication: CONSTIPATION
     Dosage: 24 MG, UNK
     Route: 048
  109. SOLDEM 1 [Concomitant]
     Active Substance: DEXTROSE\SODIUM CHLORIDE\SODIUM LACTATE
     Indication: SEPSIS
     Dosage: 500 ML, UNK
     Route: 042
     Dates: start: 20151210, end: 20151210
  110. SOLDEM 1 [Concomitant]
     Active Substance: DEXTROSE\SODIUM CHLORIDE\SODIUM LACTATE
     Dosage: 500 ML, BID
     Route: 042
     Dates: start: 20151103, end: 20151103
  111. SOLDEM 1 [Concomitant]
     Active Substance: DEXTROSE\SODIUM CHLORIDE\SODIUM LACTATE
     Dosage: 500 ML, BID
     Dates: start: 20151127, end: 20151207
  112. REBAMIPIDE [Concomitant]
     Active Substance: REBAMIPIDE
     Indication: CHRONIC GASTRITIS
     Dosage: 100 MG, TID
     Route: 048
  113. LACRIMIN [Concomitant]
     Active Substance: BENOXINATE HYDROCHLORIDE
     Indication: LACRIMATION INCREASED
     Dosage: UNK, QID
     Route: 047
     Dates: start: 20151217
  114. HEPAFLUSH [Concomitant]
     Active Substance: HEPARIN SODIUM
     Indication: PROPHYLAXIS
     Dosage: 10 ML, UNK
     Route: 042
     Dates: start: 20151118, end: 20151126
  115. FLUNITRAZEPAM [Concomitant]
     Active Substance: FLUNITRAZEPAM
     Indication: INSOMNIA
     Dosage: 1 MG, UNK
     Route: 048
     Dates: start: 20151112
  116. BESOFTEN [Concomitant]
     Active Substance: SODIUM ALGINATE
     Indication: DRY SKIN
     Dosage: UNK
     Route: 061
     Dates: start: 20151123
  117. CALONAL [Concomitant]
     Active Substance: ACETAMINOPHEN
     Dosage: UNK
     Route: 065
  118. FELBINAC [Concomitant]
     Active Substance: FELBINAC
     Indication: BACK PAIN
     Dosage: 140 MG, UNK
     Route: 065
     Dates: start: 20151117, end: 20151117
  119. METOCLOPRAMIDE. [Concomitant]
     Active Substance: METOCLOPRAMIDE
     Indication: VOMITING
     Dosage: 5 MG, TID
     Route: 048
     Dates: start: 20151223, end: 20151226
  120. FLORID                             /00310801/ [Concomitant]
     Active Substance: MICONAZOLE
     Indication: ORAL CANDIDIASIS
     Dosage: 5 G, TID
     Route: 048
     Dates: start: 20151101, end: 20151107
  121. VALIXA [Concomitant]
     Active Substance: VALGANCICLOVIR
     Dosage: 450 MG, UNK
     Route: 048
     Dates: start: 20151209, end: 20151209
  122. IMMUNOGLOBULIN HUMAN NORMAL [Concomitant]
     Active Substance: HUMAN IMMUNOGLOBULIN G
     Indication: SEPSIS
     Dosage: 5000 MG, UNK
     Route: 042
     Dates: start: 20151111, end: 20151112
  123. IMMUNOGLOBULIN HUMAN NORMAL [Concomitant]
     Active Substance: HUMAN IMMUNOGLOBULIN G
     Dosage: 5000 MG, UNK
     Route: 042
     Dates: start: 20151201, end: 20151202
  124. VANCOMYCIN [Concomitant]
     Active Substance: VANCOMYCIN
     Dosage: 0.5 G, UNK
     Route: 042
     Dates: start: 20151113, end: 20151113
  125. ARBEKACIN SULFATE [Concomitant]
     Active Substance: ARBEKACIN SULFATE
     Indication: SEPSIS
     Dosage: 200 MG, UNK
     Route: 042
     Dates: start: 20151114, end: 20151126
  126. OXYCODONE [Concomitant]
     Active Substance: OXYCODONE
     Indication: CANCER PAIN
     Dosage: 5 MG, UNK
     Route: 048
     Dates: start: 20151230, end: 20160204

REACTIONS (17)
  - Decreased appetite [Recovered/Resolved]
  - Insomnia [Unknown]
  - Syncope [Unknown]
  - Cytomegalovirus infection [Unknown]
  - Choking [Recovered/Resolved]
  - Gait disturbance [Unknown]
  - Hypoxia [Recovered/Resolved]
  - Sepsis [Recovered/Resolved]
  - Oral candidiasis [Unknown]
  - Drug eruption [Unknown]
  - Neutrophil count decreased [Unknown]
  - Back pain [Unknown]
  - Lung infection [Recovered/Resolved]
  - Vomiting [Unknown]
  - Infection [Unknown]
  - Depressed level of consciousness [Recovered/Resolved]
  - Dehydration [Recovered/Resolved]

NARRATIVE: CASE EVENT DATE: 20151030
